FAERS Safety Report 13152883 (Version 1)
Quarter: 2017Q1

REPORT INFORMATION
  Report Type: Report from Study
  Country: US (occurrence: US)
  Receive Date: 20170126
  Receipt Date: 20170126
  Transmission Date: 20170428
  Serious: Yes (Other)
  Sender: FDA-Public Use
  Company Number: US-ROCHE-1699797

PATIENT
  Sex: Female

DRUGS (1)
  1. LUCENTIS [Suspect]
     Active Substance: RANIBIZUMAB
     Indication: NEOVASCULAR AGE-RELATED MACULAR DEGENERATION
     Dosage: RIGHT EYE
     Route: 050

REACTIONS (13)
  - Hypertension [Unknown]
  - Blindness [Unknown]
  - Malaise [Unknown]
  - Pneumonia [Unknown]
  - Hypoacusis [Not Recovered/Not Resolved]
  - Decreased appetite [Unknown]
  - Vision blurred [Unknown]
  - Hypoacusis [Unknown]
  - Dyspnoea [Unknown]
  - Weight decreased [Unknown]
  - Glucose tolerance impaired [Unknown]
  - Rash [Not Recovered/Not Resolved]
  - Stress [Unknown]
